FAERS Safety Report 5248268-6 (Version None)
Quarter: 2007Q1

REPORT INFORMATION
  Report Type: 
  Country: None (occurrence: None)
  Receive Date: 20070227
  Receipt Date: 20061024
  Transmission Date: 20070707
  Serious: No
  Sender: FDA-Public Use
  Company Number: US-BRISTOL-MYERS SQUIBB COMPANY-13554274

PATIENT
  Age: 55 Year
  Sex: Female
  Weight: 95 kg

DRUGS (2)
  1. METFORMIN HCL [Suspect]
     Dosage: PT CURRENTLY TAKES 10MG 1-2TIMES DAILY OF GLLIPIZIDE
     Route: 048
     Dates: start: 20050101
  2. GLIPIZIDE [Suspect]
     Indication: BLOOD GLUCOSE
     Route: 048

REACTIONS (3)
  - BURNING SENSATION [None]
  - LIP SWELLING [None]
  - RASH [None]
